FAERS Safety Report 6634949-6 (Version None)
Quarter: 2010Q1

REPORT INFORMATION
  Report Type: 
  Country: None (occurrence: None)
  Receive Date: 20100315
  Receipt Date: 20100304
  Transmission Date: 20100710
  Serious: Yes (Other)
  Sender: FDA-Public Use
  Company Number: US-PFIZER INC-2009312339

PATIENT
  Age: 83 Year
  Sex: Female

DRUGS (7)
  1. NORVASC [Suspect]
     Dosage: 5 MG, DAILY
     Dates: start: 20090901, end: 20100105
  2. CREON [Suspect]
     Indication: GASTROINTESTINAL CARCINOMA
     Dosage: 24000 IU, 3X/DAY
     Dates: start: 20091209, end: 20091213
  3. LOPRESSOR [Concomitant]
     Indication: HYPERTENSION
     Dosage: 100 MG, 2X/DAY
  4. CATAPRES-TTS-1 [Concomitant]
     Indication: HYPERTENSION
     Dosage: UNK
  5. LOPERAMIDE HYDROCHLORIDE [Concomitant]
     Indication: DIARRHOEA
     Dosage: UNK
  6. CALCIUM [Concomitant]
     Dosage: UNK
  7. IMDUR [Concomitant]
     Indication: HYPERTENSION
     Dosage: UNK

REACTIONS (4)
  - HEART RATE INCREASED [None]
  - MICTURITION DISORDER [None]
  - OEDEMA PERIPHERAL [None]
  - RENAL DISORDER [None]
